FAERS Safety Report 4673233-7 (Version None)
Quarter: 2005Q2

REPORT INFORMATION
  Report Type: 
  Country: None (occurrence: None)
  Receive Date: 20050523
  Receipt Date: 20050523
  Transmission Date: 20051028
  Serious: Yes (Other)
  Sender: FDA-Public Use
  Company Number: None

PATIENT
  Age: 80 Year
  Sex: Male
  Weight: 114.3 kg

DRUGS (16)
  1. TERAZOSIN [Suspect]
  2. HYDRALAZINE HCL [Concomitant]
  3. METOPROLOL TARTRATE [Concomitant]
  4. CLONIDINE HCL [Concomitant]
  5. LANOXIN [Concomitant]
  6. SPIRONOLACTONE [Concomitant]
  7. ISOSORBIDE MONONITRATE [Concomitant]
  8. FUROSEMIDE [Concomitant]
  9. SIMVASTATIN [Concomitant]
  10. TERAZOSIN HCL [Concomitant]
  11. COUMADIN [Concomitant]
  12. FOSINOPRIL [Concomitant]
  13. TIOTROPIUM [Concomitant]
  14. POTASSIUM CHLORIDE [Concomitant]
  15. ALBUTEROL [Concomitant]
  16. LORAZEPAM [Concomitant]

REACTIONS (1)
  - DIZZINESS [None]
